FAERS Safety Report 25625912 (Version 1)
Quarter: 2025Q3

REPORT INFORMATION
  Report Type: Spontaneous
  Country: US (occurrence: US)
  Receive Date: 20250731
  Receipt Date: 20250731
  Transmission Date: 20251020
  Serious: No
  Sender: HIKMA
  Company Number: US-HIKMA PHARMACEUTICALS USA INC.-US-H14001-25-02783

PATIENT
  Age: 58 Year
  Sex: Male

DRUGS (3)
  1. DILAUDID [Suspect]
     Active Substance: HYDROMORPHONE HYDROCHLORIDE
     Indication: Pain
     Route: 065
  2. KETAMINE [Suspect]
     Active Substance: KETAMINE
     Indication: Pain
     Route: 042
  3. OXYCODONE [Suspect]
     Active Substance: OXYCODONE
     Indication: Pain
     Route: 065

REACTIONS (7)
  - Condition aggravated [Unknown]
  - Peripheral swelling [Unknown]
  - Peripheral coldness [Unknown]
  - Movement disorder [Unknown]
  - Hypoaesthesia [Unknown]
  - Hyponatraemia [Unknown]
  - Drug ineffective [Unknown]
